FAERS Safety Report 8151397-0 (Version None)
Quarter: 2012Q1

REPORT INFORMATION
  Report Type: 
  Country: None (occurrence: None)
  Receive Date: 20120220
  Receipt Date: 20120207
  Transmission Date: 20120608
  Serious: Yes (Hospitalization)
  Sender: FDA-Public Use
  Company Number: US-ROCHE-1036839

PATIENT
  Sex: Female
  Weight: 142 kg

DRUGS (1)
  1. AVASTIN [Suspect]
     Indication: COLORECTAL CANCER METASTATIC
     Route: 042
     Dates: start: 20110309, end: 20120117

REACTIONS (4)
  - PANCREATIC ENZYMES INCREASED [None]
  - PANCREATITIS ACUTE [None]
  - ABDOMINAL PAIN [None]
  - BACK PAIN [None]
